FAERS Safety Report 22060534 (Version 1)
Quarter: 2023Q1

REPORT INFORMATION
  Report Type: Spontaneous
  Country: GB (occurrence: GB)
  Receive Date: 20230303
  Receipt Date: 20230303
  Transmission Date: 20230418
  Serious: Yes (Death, Hospitalization, Other)
  Sender: FDA-Public Use
  Company Number: None

PATIENT
  Age: 87 Year
  Sex: Female

DRUGS (1)
  1. EDOXABAN [Suspect]
     Active Substance: EDOXABAN
     Indication: Pulmonary embolism
     Dosage: UNK
     Route: 065

REACTIONS (5)
  - Haemorrhage [Fatal]
  - Injury [Not Recovered/Not Resolved]
  - Pelvic fracture [Not Recovered/Not Resolved]
  - Hypotension [Not Recovered/Not Resolved]
  - Pelvic haematoma [Not Recovered/Not Resolved]
